FAERS Safety Report 8459533-3 (Version None)
Quarter: 2012Q2

REPORT INFORMATION
  Report Type: 
  Country: None (occurrence: None)
  Receive Date: 20120622
  Receipt Date: 20120618
  Transmission Date: 20120825
  Serious: Yes (Hospitalization)
  Sender: FDA-Public Use
  Company Number: US-PFIZER INC-2012129285

PATIENT
  Sex: Male
  Weight: 124 kg

DRUGS (18)
  1. FINASTERIDE [Concomitant]
     Dosage: 5 MG, 1X/DAY
  2. VITAMIN B-12 [Concomitant]
     Dosage: UNK, MONTHLY
  3. CLONIDINE [Concomitant]
     Dosage: 0.1 MG, 1X/DAY
  4. SUTENT [Suspect]
     Dosage: 12.5 MG, 1X/DAY
     Route: 048
     Dates: start: 20120101, end: 20120301
  5. COMPAZINE [Suspect]
  6. NATEGLINIDE [Concomitant]
     Dosage: 30 MG, 3X/DAY
  7. SUTENT [Suspect]
     Dosage: 37.5 MG (ONE CAPSULE OF 25MG AND ONE OF 12.5MG), 1X/DAY
     Route: 048
     Dates: start: 20120318, end: 20120101
  8. ALLOPURINOL [Concomitant]
     Dosage: 100 MG, 3X/WEEK
  9. DILTIAZEM [Concomitant]
     Dosage: 180 MG, 2X/DAY
  10. DIVALPROEX SODIUM [Concomitant]
     Dosage: 750 MG, 2X/DAY
  11. VITAMIN D [Concomitant]
     Dosage: 50000 IU, MONTHLY
  12. SUTENT [Suspect]
     Indication: RENAL CELL CARCINOMA
     Dosage: 50 MG, 1X/DAY
     Route: 048
     Dates: start: 20101201, end: 20120401
  13. LOVAZA [Concomitant]
     Dosage: 1000 MG, 1X/DAY
  14. PANTOPRAZOLE [Concomitant]
     Dosage: 40 MG, 1X/DAY
  15. LISINOPRIL [Concomitant]
     Dosage: 20 MG, 2X/DAY
  16. JANUVIA [Concomitant]
     Indication: DIABETES MELLITUS
     Dosage: 50 MG, 1X/DAY
  17. INLYTA [Suspect]
     Indication: RENAL CELL CARCINOMA
     Dosage: UNK, 2X/DAY
     Route: 048
     Dates: start: 20120427, end: 20120510
  18. LIPITOR [Concomitant]
     Dosage: 10 MG, 1X/DAY

REACTIONS (16)
  - CENTRAL NERVOUS SYSTEM LESION [None]
  - DYSPNOEA [None]
  - RENAL CELL CARCINOMA [None]
  - SEPSIS [None]
  - HYPERTENSION [None]
  - CHILLS [None]
  - BLOOD MAGNESIUM DECREASED [None]
  - DISEASE PROGRESSION [None]
  - CONVULSION [None]
  - MENTAL IMPAIRMENT [None]
  - GAIT DISTURBANCE [None]
  - AMNESIA [None]
  - OEDEMA PERIPHERAL [None]
  - PYREXIA [None]
  - COUGH [None]
  - PERSONALITY CHANGE [None]
